FAERS Safety Report 8377359-6 (Version None)
Quarter: 2012Q2

REPORT INFORMATION
  Report Type: 
  Country: None (occurrence: None)
  Receive Date: 20120522
  Receipt Date: 20120515
  Transmission Date: 20120825
  Serious: Yes (Hospitalization)
  Sender: FDA-Public Use
  Company Number: JP-ROCHE-1062735

PATIENT
  Sex: Male

DRUGS (4)
  1. LUCENTIS [Suspect]
     Indication: AGE-RELATED MACULAR DEGENERATION
     Dosage: RECEIVED 10 INJECTIONS.
     Route: 050
     Dates: start: 20100411
  2. LEVOFLOXACIN [Concomitant]
     Dates: start: 20100501, end: 20100701
  3. HYALEIN [Concomitant]
     Dates: start: 20100615
  4. VISUDYNE [Concomitant]
     Indication: AGE-RELATED MACULAR DEGENERATION
     Dates: start: 20070301, end: 20070301

REACTIONS (3)
  - CEREBRAL INFARCTION [None]
  - APHASIA [None]
  - HEMIPLEGIA [None]
